FAERS Safety Report 9122019 (Version 1)
Quarter: 2013Q1

REPORT INFORMATION
  Report Type: Report from Study
  Country: US (occurrence: US)
  Receive Date: 20130114
  Receipt Date: 20130114
  Transmission Date: 20140127
  Serious: Yes (Life-Threatening, Hospitalization)
  Sender: FDA-Public Use
  Company Number: US-JNJFOC-20130103161

PATIENT
  Age: 43 Year
  Sex: Male

DRUGS (2)
  1. NUCYNTA ER [Suspect]
     Indication: PRODUCT USED FOR UNKNOWN INDICATION
     Dosage: 20 TABLETS OF 200MG
     Route: 048
     Dates: start: 20120725
  2. TRAMADOL [Suspect]
     Indication: PRODUCT USED FOR UNKNOWN INDICATION
     Dosage: 20 TABLETS OF 50 MG
     Route: 048
     Dates: start: 20120725

REACTIONS (3)
  - Unresponsive to stimuli [Recovering/Resolving]
  - Apnoea [Recovering/Resolving]
  - Intentional overdose [Recovering/Resolving]
